FAERS Safety Report 18551459 (Version 2)
Quarter: 2021Q3

REPORT INFORMATION
  Report Type: Spontaneous
  Country: US (occurrence: US)
  Receive Date: 20201126
  Receipt Date: 20210731
  Transmission Date: 20211014
  Serious: Yes (Other)
  Sender: FDA-Public Use
  Company Number: NVSC2020US316571

PATIENT
  Sex: Female
  Weight: 65.76 kg

DRUGS (2)
  1. COMBIPATCH [Suspect]
     Active Substance: ESTRADIOL\NORETHINDRONE ACETATE
     Dosage: UNK, BIW
     Route: 062
     Dates: start: 202008
  2. COMBIPATCH [Suspect]
     Active Substance: ESTRADIOL\NORETHINDRONE ACETATE
     Indication: HOT FLUSH
     Dosage: 0.05/0.14 MG, BIW (CHANGING ON SUNDAY AND WEDNESDAY)
     Route: 062
     Dates: start: 201811

REACTIONS (9)
  - Product adhesion issue [Recovered/Resolved]
  - Product dose omission issue [Recovered/Resolved]
  - Device issue [Recovered/Resolved]
  - Anxiety [Recovered/Resolved]
  - Retching [Recovered/Resolved]
  - Vomiting [Recovered/Resolved]
  - Headache [Recovered/Resolved]
  - Malaise [Recovered/Resolved]
  - Wrong technique in product usage process [Recovered/Resolved]

NARRATIVE: CASE EVENT DATE: 2020
